FAERS Safety Report 9078986 (Version 2)
Quarter: 2013Q1

REPORT INFORMATION
  Report Type: Spontaneous
  Country: AT (occurrence: AT)
  Receive Date: 20130215
  Receipt Date: 20130226
  Transmission Date: 20140127
  Serious: Yes (Hospitalization, Other)
  Sender: FDA-Public Use
  Company Number: AT-ELI_LILLY_AND_COMPANY-AT201302002369

PATIENT
  Age: 68 Year
  Sex: Male
  Weight: 93 kg

DRUGS (2)
  1. PEMETREXED [Suspect]
     Indication: NON-SMALL CELL LUNG CANCER
     Dosage: 500 MG/M2, UNK
     Route: 042
  2. FOLSAN [Concomitant]
     Dosage: 0.4 MG, UNK
     Route: 048

REACTIONS (1)
  - Ileus paralytic [Recovered/Resolved]
